FAERS Safety Report 18173875 (Version 1)
Quarter: 2020Q3

REPORT INFORMATION
  Report Type: Spontaneous
  Country: US (occurrence: US)
  Receive Date: 20200819
  Receipt Date: 20200819
  Transmission Date: 20201103
  Serious: Yes (Hospitalization)
  Sender: FDA-Public Use
  Company Number: None

PATIENT
  Age: 21 Year
  Sex: Male
  Weight: 123 kg

DRUGS (8)
  1. PIPERACILLIN/TAZOBACTAM 3.375 [Concomitant]
     Active Substance: PIPERACILLIN SODIUM\TAZOBACTAM SODIUM
     Dates: start: 20200813
  2. METHYLPREDNISOLONE 125MG [Concomitant]
     Dates: start: 20200812, end: 20200812
  3. REMDESIVIR. [Suspect]
     Active Substance: REMDESIVIR
     Indication: SARS-COV-2 TEST POSITIVE
     Route: 042
     Dates: start: 20200812, end: 20200814
  4. CEFTRIAXONE 2 GM [Concomitant]
     Dates: start: 20200812, end: 20200813
  5. PANTOPRAZOLE 40MG DAILY [Concomitant]
     Dates: start: 20200813
  6. ACYCLOVIR 850 MG [Concomitant]
     Dates: start: 20200812, end: 20200812
  7. ENOXAPARIN 120 MG Q12H [Concomitant]
     Dates: start: 20200812, end: 20200814
  8. DEXAMETHASONE 6 MG IV [Concomitant]
     Dates: start: 20200815, end: 20200819

REACTIONS (2)
  - Haemodialysis [None]
  - Acute kidney injury [None]

NARRATIVE: CASE EVENT DATE: 20200813
